FAERS Safety Report 4693781-3 (Version None)
Quarter: 2005Q2

REPORT INFORMATION
  Report Type: 
  Country: None (occurrence: None)
  Receive Date: 20050616
  Receipt Date: 20050606
  Transmission Date: 20051028
  Serious: Yes (Other)
  Sender: FDA-Public Use
  Company Number: 2005082197

PATIENT
  Age: 60 Year
  Sex: 0

DRUGS (6)
  1. NORVASC [Suspect]
     Indication: HYPERTENSION
     Dosage: ORAL
     Route: 048
     Dates: start: 20040501
  2. BUFFERIN [Concomitant]
  3. DEPAX 9DIAZEPAM) [Concomitant]
  4. NITRAZEPAM [Concomitant]
  5. ALOSENN (ACHILLEA, RUBIA ROOT TINCTURE, SENNA DRUIT, SENNA LEAF, TARAX [Concomitant]
  6. PARKISONAL (TRIHEXYPHENIDYL HYDROCHLORIDE) [Concomitant]

REACTIONS (1)
  - PARKINSON'S DISEASE [None]
